FAERS Safety Report 10788414 (Version 1)
Quarter: 2015Q1

REPORT INFORMATION
  Report Type: Spontaneous
  Country: ZA (occurrence: ZA)
  Receive Date: 20150212
  Receipt Date: 20150212
  Transmission Date: 20150721
  Serious: Yes (Other)
  Sender: FDA-Public Use
  Company Number: ZA-BAYER-2015-017441

PATIENT
  Sex: Female

DRUGS (1)
  1. MIRENA [Suspect]
     Active Substance: LEVONORGESTREL
     Indication: CONTRACEPTION
     Dosage: 20 MCG/24HR, CONT
     Route: 015
     Dates: end: 2014

REACTIONS (16)
  - Restlessness [Recovered/Resolved]
  - Pruritus [Recovered/Resolved]
  - Head discomfort [Recovered/Resolved]
  - Paraesthesia [Recovered/Resolved]
  - Pain [Recovered/Resolved]
  - Fibromyalgia [Recovered/Resolved]
  - Multiple sclerosis [Recovered/Resolved]
  - Fatigue [Recovered/Resolved]
  - Hypersensitivity [Recovered/Resolved]
  - Hypoaesthesia [Recovered/Resolved]
  - Burning sensation [Recovered/Resolved]
  - Anxiety [Recovered/Resolved]
  - Allodynia [Recovered/Resolved]
  - Neuralgia [Recovered/Resolved]
  - Eye disorder [Recovered/Resolved]
  - Urticaria [Recovered/Resolved]
